FAERS Safety Report 7972642-8 (Version None)
Quarter: 2011Q4

REPORT INFORMATION
  Report Type: 
  Country: None (occurrence: None)
  Receive Date: 20111213
  Receipt Date: 20111205
  Transmission Date: 20120403
  Serious: Yes (Congenital Anomaly)
  Sender: FDA-Public Use
  Company Number: US-JNJFOC-20111203502

PATIENT

DRUGS (1)
  1. TOPAMAX [Suspect]
     Indication: FOETAL EXPOSURE DURING PREGNANCY
     Route: 064
     Dates: start: 20050101, end: 20070101

REACTIONS (4)
  - JAUNDICE [None]
  - TALIPES [None]
  - MUSCULOSKELETAL DISORDER [None]
  - NEUROMYOPATHY [None]
